FAERS Safety Report 11151435 (Version 1)
Quarter: 2015Q2

REPORT INFORMATION
  Report Type: Spontaneous
  Country: US (occurrence: US)
  Receive Date: 20150601
  Receipt Date: 20150601
  Transmission Date: 20150821
  Serious: Yes (Other)
  Sender: FDA-Public Use
  Company Number: US-BIOGENIDEC-2015BI073436

PATIENT
  Age: 64 Year
  Sex: Female

DRUGS (1)
  1. AVONEX [Suspect]
     Active Substance: INTERFERON BETA-1A
     Indication: MULTIPLE SCLEROSIS
     Route: 030
     Dates: start: 19980101

REACTIONS (9)
  - Road traffic accident [Recovered/Resolved]
  - Systemic lupus erythematosus [Not Recovered/Not Resolved]
  - Fatigue [Unknown]
  - Pulmonary fibrosis [Not Recovered/Not Resolved]
  - Facial bones fracture [Unknown]
  - Crush injury [Unknown]
  - Stress [Not Recovered/Not Resolved]
  - Concussion [Recovered/Resolved]
  - Influenza like illness [Unknown]

NARRATIVE: CASE EVENT DATE: 20140501
